FAERS Safety Report 15794319 (Version 1)
Quarter: 2018Q4

REPORT INFORMATION
  Report Type: Spontaneous
  Country: US (occurrence: US)
  Receive Date: 20181213
  Receipt Date: 20181213
  Transmission Date: 20190205
  Serious: No
  Sender: FDA-Public Use
  Company Number: None

PATIENT
  Age: 47 Year
  Sex: Female

DRUGS (1)
  1. RASUVO [Suspect]
     Active Substance: METHOTREXATE SODIUM
     Indication: RHEUMATOID ARTHRITIS
     Dosage: ?          OTHER DOSE:20MG (0.4ML); ONCE WEEKLY ON THE SAME DAY EACH WEEK AS DIRECTED?
     Route: 058
     Dates: start: 201810

REACTIONS (3)
  - Malaise [None]
  - Dyspnoea [None]
  - Systemic lupus erythematosus [None]
